FAERS Safety Report 25237418 (Version 1)
Quarter: 2025Q2

REPORT INFORMATION
  Report Type: Spontaneous
  Country: US (occurrence: US)
  Receive Date: 20250425
  Receipt Date: 20250425
  Transmission Date: 20250716
  Serious: No
  Sender: ROCHE
  Company Number: US-ROCHE-10000264683

PATIENT
  Sex: Male

DRUGS (2)
  1. ERIVEDGE [Suspect]
     Active Substance: VISMODEGIB
     Indication: Neoplasm skin
     Route: 048
  2. ADVIL TAB [Concomitant]

REACTIONS (11)
  - Alopecia [Unknown]
  - Muscle spasms [Unknown]
  - Dysgeusia [Unknown]
  - Abnormal dreams [Unknown]
  - Thermal burn [Unknown]
  - Erythema [Unknown]
  - Malaise [Unknown]
  - Fatigue [Unknown]
  - Decreased appetite [Unknown]
  - Ocular hyperaemia [Unknown]
  - Exercise tolerance decreased [Unknown]
